FAERS Safety Report 14514618 (Version 1)
Quarter: 2018Q1

REPORT INFORMATION
  Report Type: Report from Study
  Country: US (occurrence: US)
  Receive Date: 20180209
  Receipt Date: 20180209
  Transmission Date: 20180509
  Serious: Yes (Other)
  Sender: FDA-Public Use
  Company Number: US-GILEAD-2018-0318677

PATIENT
  Age: 66 Year
  Sex: Female

DRUGS (1)
  1. LEDIPASVIR/SOFOSBUVIR [Suspect]
     Active Substance: LEDIPASVIR\SOFOSBUVIR
     Indication: CHRONIC HEPATITIS C
     Dosage: 1 DF, UNK
     Route: 048
     Dates: start: 20180112

REACTIONS (6)
  - Asthenia [Unknown]
  - Laryngeal haemorrhage [Not Recovered/Not Resolved]
  - Laryngitis [Unknown]
  - Impaired work ability [Not Recovered/Not Resolved]
  - Influenza [Unknown]
  - Stress [Not Recovered/Not Resolved]
